FAERS Safety Report 15404479 (Version 1)
Quarter: 2018Q4

REPORT INFORMATION
  Report Type: Spontaneous
  Country: US (occurrence: US)
  Receive Date: 20180919
  Receipt Date: 20180919
  Transmission Date: 20190204
  Serious: Yes (Other)
  Sender: FDA-Public Use
  Company Number: US-TARO-2018TAR00658

PATIENT
  Sex: Male

DRUGS (3)
  1. XELJANZ [Suspect]
     Active Substance: TOFACITINIB CITRATE
  2. UNSPECIFIED DMARD^S (DISEASE-MODIFYING ANTIRHEUMATIC DRUGS) [Suspect]
     Active Substance: UNSPECIFIED INGREDIENT
  3. CLOTRIMAZOLE TOPICAL CREAM USP 1% [Suspect]
     Active Substance: CLOTRIMAZOLE

REACTIONS (2)
  - Liver function test increased [Recovering/Resolving]
  - Psoriatic arthropathy [Not Recovered/Not Resolved]
